FAERS Safety Report 7383652-6 (Version None)
Quarter: 2011Q1

REPORT INFORMATION
  Report Type: 
  Country: None (occurrence: None)
  Receive Date: 20110330
  Receipt Date: 20110309
  Transmission Date: 20110831
  Serious: Yes (Other)
  Sender: FDA-Public Use
  Company Number: US-BAYER-200934799NA

PATIENT
  Sex: Male
  Weight: 82.54 kg

DRUGS (7)
  1. TRASYLOL [Suspect]
     Indication: MITRAL VALVE REPAIR
  2. PROTAMINE SULFATE [Concomitant]
     Dosage: UNK
     Route: 042
     Dates: start: 20050728
  3. PAPAVERINE [Concomitant]
     Dosage: UNK
     Route: 042
     Dates: start: 20050728
  4. TRASYLOL [Suspect]
     Indication: CARDIAC ANEURYSM
     Dosage: 10,000 UNITS/ML  (3)
     Dates: start: 20050728
  5. EPINEPHRINE [Concomitant]
     Dosage: UNK
     Route: 042
     Dates: start: 20050728
  6. HEPARIN SODIUM [Concomitant]
     Dosage: UNK
     Route: 042
     Dates: start: 20050728
  7. TRASYLOL [Suspect]
     Indication: CORONARY ARTERY BYPASS

REACTIONS (10)
  - MULTI-ORGAN FAILURE [None]
  - ANXIETY [None]
  - DEPRESSION [None]
  - EMOTIONAL DISTRESS [None]
  - INJURY [None]
  - FEAR [None]
  - RENAL INJURY [None]
  - RENAL FAILURE [None]
  - NERVOUSNESS [None]
  - PAIN [None]
